FAERS Safety Report 9459050 (Version 3)
Quarter: 2013Q4

REPORT INFORMATION
  Report Type: Spontaneous
  Country: US (occurrence: US)
  Receive Date: 20130814
  Receipt Date: 20131202
  Transmission Date: 20140711
  Serious: Yes (Hospitalization)
  Sender: FDA-Public Use
  Company Number: US-UCBSA-070667

PATIENT
  Age: 59 Year
  Sex: Female
  Weight: 83.4 kg

DRUGS (27)
  1. CIMZIA [Suspect]
     Indication: RHEUMATOID ARTHRITIS
     Route: 058
     Dates: start: 20110327, end: 20130710
  2. ATENOLOL [Concomitant]
     Dosage: STRENGTH: 100 MG
  3. FOLIC ACID [Concomitant]
  4. LIDODERM 5% [Concomitant]
     Dosage: PATCH, 12 HOURS DAILY AS NEEDED
  5. PROAIR HFA [Concomitant]
     Dosage: 2 PUFF
  6. LINSINOPRIL [Concomitant]
     Dosage: STRENGTH: 40 MG AND DAILY DOSE : 40 MG
  7. SIMVAST [Concomitant]
     Dosage: STRENGTH: 40 MG AT BED TIME
  8. SULFASALINE [Concomitant]
     Dosage: STRENGTH: 500 MG
  9. METHOTREXATE [Concomitant]
     Indication: RHEUMATOID ARTHRITIS
     Dosage: STRENGTH: 25 MG, 10 TABLETS EVERY WEEK
  10. PREDNISONE [Concomitant]
     Dosage: STRENGTH: 5 MG
  11. OMEPRAZOLE [Concomitant]
     Dosage: DOSE: 20 MG CPDR
  12. NORCO [Concomitant]
     Dosage: STRENGTH: 10 MG
  13. ALENDRONATE SODIUM [Concomitant]
     Dosage: STRENGTH: 70 MG
  14. IBUPROFEN [Concomitant]
     Dosage: STRENGTH: 800 MG
  15. CLONIDINE HCL [Concomitant]
     Dosage: STRENGTH: 0.3 MG
  16. KLOR CON MEQ [Concomitant]
  17. HCTZ [Concomitant]
  18. AMLODIPINE BESYLATE [Concomitant]
  19. ASA [Concomitant]
  20. LASIX [Concomitant]
     Indication: HYPERTENSION
     Dates: start: 20130323, end: 2013
  21. LASIX [Concomitant]
     Indication: HYPERTENSION
     Dates: start: 2013
  22. CYCLOBENZAPRINE [Concomitant]
     Dosage: 10 MG
  23. HYDROCODONE / ACETAMINOPHEN [Concomitant]
     Dosage: 10/325
  24. MORPHINE SULFATE [Concomitant]
  25. OMEGA-3 [Concomitant]
  26. FUROSEMIDE [Concomitant]
  27. CITRACAL [Concomitant]
     Dosage: 315:200 MG TABLET, 2 TAB DAILY

REACTIONS (9)
  - Pancreatitis [Recovered/Resolved]
  - Kidney infection [Recovered/Resolved]
  - Infectious colitis [Recovered/Resolved]
  - Rhinorrhoea [Recovered/Resolved]
  - Oropharyngeal pain [Recovered/Resolved]
  - Malaise [Recovered/Resolved]
  - Musculoskeletal stiffness [Recovered/Resolved]
  - Blood pressure increased [Recovered/Resolved]
  - Stress [Recovered/Resolved]
